FAERS Safety Report 12833949 (Version 1)
Quarter: 2016Q4

REPORT INFORMATION
  Report Type: Report from Study
  Country: US (occurrence: US)
  Receive Date: 20161010
  Receipt Date: 20161010
  Transmission Date: 20170207
  Serious: Yes (Hospitalization, Other)
  Sender: FDA-Public Use
  Company Number: US-JNJFOC-20141008436

PATIENT

DRUGS (1)
  1. DURAGESIC [Suspect]
     Active Substance: FENTANYL
     Indication: PRODUCT USED FOR UNKNOWN INDICATION
     Route: 062

REACTIONS (10)
  - Splenectomy [Unknown]
  - Urinary tract infection [Unknown]
  - Diaphragmatic paralysis [Unknown]
  - Scoliosis [Unknown]
  - Body height decreased [Unknown]
  - Road traffic accident [Unknown]
  - Pneumonia [Unknown]
  - Pain [Unknown]
  - Renal failure [Unknown]
  - Cholecystectomy [Unknown]
